FAERS Safety Report 12010504 (Version 2)
Quarter: 2016Q1

REPORT INFORMATION
  Report Type: Spontaneous
  Country: US (occurrence: US)
  Receive Date: 20160205
  Receipt Date: 20160318
  Transmission Date: 20160526
  Serious: No
  Sender: FDA-Public Use
  Company Number: US-009507513-1602USA003381

PATIENT
  Age: 32 Year
  Sex: Female
  Weight: 71.84 kg

DRUGS (1)
  1. NEXPLANON [Suspect]
     Active Substance: ETONOGESTREL
     Indication: CONTRACEPTION
     Dosage: 1 ROD (68 MG)/ 3 YEARS
     Route: 059
     Dates: start: 20151228, end: 20160125

REACTIONS (3)
  - Pain in extremity [Recovered/Resolved]
  - Maternal exposure before pregnancy [Unknown]
  - Headache [Recovered/Resolved]

NARRATIVE: CASE EVENT DATE: 20151228
